FAERS Safety Report 25919695 (Version 1)
Quarter: 2025Q4

REPORT INFORMATION
  Report Type: Spontaneous
  Country: CN (occurrence: CN)
  Receive Date: 20251014
  Receipt Date: 20251014
  Transmission Date: 20260118
  Serious: Yes (Other)
  Sender: GLAND PHARMA LTD
  Company Number: CN-GLANDPHARMA-CN-2025GLNLIT02011

PATIENT
  Age: 47 Year
  Sex: Female

DRUGS (8)
  1. OXALIPLATIN [Suspect]
     Active Substance: OXALIPLATIN
     Indication: Gastric cancer
     Dosage: CYCLE 1
     Route: 042
     Dates: start: 20240407
  2. OXALIPLATIN [Suspect]
     Active Substance: OXALIPLATIN
     Dosage: CYCLE 2
     Route: 042
     Dates: start: 20240503
  3. OXALIPLATIN [Suspect]
     Active Substance: OXALIPLATIN
     Dosage: CYCLE 3
     Route: 042
     Dates: start: 20240530
  4. OXALIPLATIN [Suspect]
     Active Substance: OXALIPLATIN
     Dosage: CYCLE 9
     Route: 042
     Dates: start: 20241128
  5. OXALIPLATIN [Suspect]
     Active Substance: OXALIPLATIN
     Dosage: MONOTHERAPY
     Route: 065
     Dates: start: 2024
  6. GIMERACIL\OTERACIL\TEGAFUR [Concomitant]
     Active Substance: GIMERACIL\OTERACIL POTASSIUM\TEGAFUR
     Indication: Gastric cancer
     Route: 048
     Dates: start: 20240407
  7. SINTILIMAB [Concomitant]
     Active Substance: SINTILIMAB
     Indication: Gastric cancer
     Route: 065
     Dates: start: 20241127
  8. DEXTROSE [Concomitant]
     Active Substance: DEXTROSE MONOHYDRATE
     Indication: Supportive care
     Dosage: CYCLES 3 TO 5
     Route: 065

REACTIONS (10)
  - Ocular toxicity [Unknown]
  - Toxicity to various agents [Unknown]
  - Serous retinal detachment [Not Recovered/Not Resolved]
  - Anterior chamber inflammation [Unknown]
  - Lenticular opacities [Unknown]
  - Cataract [Unknown]
  - Blindness [Recovering/Resolving]
  - Interleukin level increased [Unknown]
  - Iris cyst [Recovered/Resolved]
  - Product use in unapproved indication [Unknown]

NARRATIVE: CASE EVENT DATE: 20240101
